FAERS Safety Report 8958221 (Version 1)
Quarter: 2012Q4

REPORT INFORMATION
  Report Type: 
  Country: TR (occurrence: TR)
  Receive Date: 20121211
  Receipt Date: 20121211
  Transmission Date: 20130627
  Serious: Yes (Hospitalization)
  Sender: FDA-Public Use
  Company Number: TR-SANOFI-AVENTIS-2012SA090029

PATIENT
  Age: 32 Year
  Sex: Male

DRUGS (1)
  1. TELITHROMYCIN [Suspect]
     Indication: ACUTE SINUSITIS
     Route: 048

REACTIONS (17)
  - Kounis syndrome [Recovering/Resolving]
  - Acute myocardial infarction [Recovering/Resolving]
  - Electrocardiogram ST segment elevation [Recovering/Resolving]
  - Dyspnoea [Recovering/Resolving]
  - Urticaria [Recovering/Resolving]
  - Troponin I increased [Recovering/Resolving]
  - Blood creatine phosphokinase MB [Recovering/Resolving]
  - Blood immunoglobulin E increased [Recovering/Resolving]
  - Tryptase increased [Recovering/Resolving]
  - Chest pain [Recovering/Resolving]
  - Cardiac failure congestive [Not Recovered/Not Resolved]
  - Ventricular hypokinesia [Not Recovered/Not Resolved]
  - Ejection fraction decreased [Not Recovered/Not Resolved]
  - Blood pressure decreased [Not Recovered/Not Resolved]
  - Cardio-respiratory arrest [Recovering/Resolving]
  - Ventricular arrhythmia [Unknown]
  - Ventricular tachycardia [Recovering/Resolving]
